FAERS Safety Report 15012955 (Version 1)
Quarter: 2018Q2

REPORT INFORMATION
  Report Type: Spontaneous
  Country: US (occurrence: US)
  Receive Date: 20180614
  Receipt Date: 20180614
  Transmission Date: 20180711
  Serious: Yes (Other)
  Sender: FDA-Public Use
  Company Number: US-SAKK-2018SA155701AA

PATIENT
  Age: 63 Year
  Sex: Male

DRUGS (1)
  1. ALIROCUMAB [Suspect]
     Active Substance: ALIROCUMAB
     Indication: CARDIOVASCULAR DISORDER
     Dosage: 75 MG
     Dates: start: 201711, end: 201803

REACTIONS (1)
  - Pancreatitis [Unknown]
